FAERS Safety Report 24827700 (Version 1)
Quarter: 2025Q1

REPORT INFORMATION
  Report Type: Spontaneous
  Country: CN (occurrence: CN)
  Receive Date: 20250109
  Receipt Date: 20250109
  Transmission Date: 20250408
  Serious: Yes (Hospitalization)
  Sender: JAZZ
  Company Number: CN-PHARMAMAR-2024PM000637

PATIENT
  Age: 61 Year
  Sex: Male
  Weight: 48 kg

DRUGS (7)
  1. ZEPZELCA [Suspect]
     Active Substance: LURBINECTEDIN
     Indication: Small cell lung cancer
     Dosage: 5 MILLIGRAM, Q3W
     Route: 042
     Dates: start: 20240715, end: 20240715
  2. DEXAMETHASONE [Concomitant]
     Active Substance: DEXAMETHASONE
     Indication: Prophylaxis
     Dates: start: 20240715, end: 20240715
  3. ONDANSETRON [Concomitant]
     Active Substance: ONDANSETRON
     Indication: Prophylaxis
     Dates: start: 20240715, end: 20240715
  4. ESOMEPRAZOLE [Concomitant]
     Active Substance: ESOMEPRAZOLE
     Indication: Prophylaxis
     Dates: start: 20240715, end: 20240715
  5. METHOXYPHENAMINE HYDROCHLORIDE [Concomitant]
     Active Substance: METHOXYPHENAMINE HYDROCHLORIDE
     Indication: Cough
     Dates: start: 20240711, end: 20240717
  6. BRAUN GLUCOSE [Concomitant]
     Indication: Small cell lung cancer
     Dosage: 250 MILLILITER, Q3W
     Route: 042
     Dates: start: 20240715, end: 20240715
  7. EUCALYPTOL LIMONENE PINENE [Concomitant]
     Indication: Cough
     Dosage: 0.3 GRAM, Q8H
     Route: 048
     Dates: start: 20240712, end: 20240717

REACTIONS (1)
  - Abdominal pain [Recovered/Resolved]

NARRATIVE: CASE EVENT DATE: 20240716
